FAERS Safety Report 4725554-7 (Version None)
Quarter: 2005Q3

REPORT INFORMATION
  Report Type: 
  Country: None (occurrence: None)
  Receive Date: 20050722
  Receipt Date: 20050722
  Transmission Date: 20060218
  Serious: Yes (Other)
  Sender: FDA-Public Use
  Company Number: None

PATIENT
  Sex: Male
  Weight: 78.4723 kg

DRUGS (10)
  1. ZETIA [Suspect]
     Indication: HYPERCHOLESTEROLAEMIA
     Dosage: 10MG DAILY ORAL
     Route: 048
     Dates: start: 20050520, end: 20050717
  2. LISINOPRIL [Suspect]
     Indication: HYPERTENSION
     Dosage: 5MG DAILY ORAL
     Route: 048
     Dates: start: 20040801, end: 20050717
  3. METOPROLOL [Concomitant]
  4. IMDUR [Concomitant]
  5. FLOMAX [Concomitant]
  6. METFORMIN [Concomitant]
  7. METAMUCIL [Concomitant]
  8. ASPIRIN [Concomitant]
  9. RANITIDINE [Concomitant]
  10. LEXAPRO [Concomitant]

REACTIONS (4)
  - OEDEMA MOUTH [None]
  - PRURITUS [None]
  - THERAPY NON-RESPONDER [None]
  - URTICARIA [None]
